FAERS Safety Report 20070674 (Version 1)
Quarter: 2021Q4

REPORT INFORMATION
  Report Type: Spontaneous
  Country: US (occurrence: None)
  Receive Date: 20211115
  Receipt Date: 20211115
  Transmission Date: 20220303
  Serious: No
  Sender: FDA-Public Use
  Company Number: None

PATIENT
  Age: 80 Year
  Sex: Female

DRUGS (1)
  1. CASIRIVIMAB\IMDEVIMAB [Suspect]
     Active Substance: CASIRIVIMAB\IMDEVIMAB
     Indication: COVID-19
     Route: 041

REACTIONS (9)
  - Infusion related reaction [None]
  - Feeling abnormal [None]
  - Feeling hot [None]
  - Flushing [None]
  - Hypertension [None]
  - Heart rate decreased [None]
  - Abdominal pain upper [None]
  - Back pain [None]
  - Oxygen saturation decreased [None]

NARRATIVE: CASE EVENT DATE: 20211115
